FAERS Safety Report 8272349-6 (Version None)
Quarter: 2012Q1

REPORT INFORMATION
  Report Type: 
  Country: None (occurrence: None)
  Receive Date: 20120314
  Receipt Date: 20100915
  Transmission Date: 20120608
  Serious: No
  Sender: FDA-Public Use
  Company Number: PHHY2010US50927

PATIENT
  Age: 39 Year
  Sex: Male
  Weight: 77.6 kg

DRUGS (4)
  1. SEROQUEL [Concomitant]
  2. FANAPT [Suspect]
     Indication: SCHIZOAFFECTIVE DISORDER
     Dosage: 6MG, BID, ORAL
     Route: 048
  3. CYMBALTA [Concomitant]
  4. DIPHENHYDRAMINE HCL [Concomitant]

REACTIONS (3)
  - DRUG INEFFECTIVE [None]
  - SOMNOLENCE [None]
  - NAUSEA [None]
